FAERS Safety Report 6498824-2 (Version None)
Quarter: 2009Q4

REPORT INFORMATION
  Report Type: 
  Country: None (occurrence: None)
  Receive Date: 20091215
  Receipt Date: 20091203
  Transmission Date: 20100525
  Serious: Yes (Death, Hospitalization)
  Sender: FDA-Public Use
  Company Number: DE-PFIZER INC-2006054853

PATIENT
  Age: 66 Year
  Sex: Male
  Weight: 66 kg

DRUGS (6)
  1. SUNITINIB MALATE [Suspect]
     Indication: METASTATIC RENAL CELL CARCINOMA
     Dosage: 50 MG, 1X/DAY
     Route: 048
     Dates: start: 20060330, end: 20060420
  2. MST [Suspect]
     Dosage: 10 MG, 3X/DAY
     Route: 048
     Dates: end: 20060420
  3. DICLOFENAC [Concomitant]
     Dosage: UNK
     Route: 048
  4. OMEPRAZOLE [Concomitant]
     Dosage: UNK
     Route: 048
  5. DIPYRONE [Concomitant]
     Dosage: UNK
     Route: 048
  6. NULYTELY [Concomitant]
     Dosage: UNK
     Route: 048

REACTIONS (4)
  - DEATH [None]
  - DIARRHOEA [None]
  - DIZZINESS [None]
  - PNEUMONIA [None]
